FAERS Safety Report 5113257-9 (Version None)
Quarter: 2006Q3

REPORT INFORMATION
  Report Type: 
  Country: None (occurrence: None)
  Receive Date: 20060922
  Receipt Date: 20060914
  Transmission Date: 20061208
  Serious: Yes (Hospitalization)
  Sender: FDA-Public Use
  Company Number: FR-BRISTOL-MYERS SQUIBB COMPANY-13510821

PATIENT
  Age: 47 Year
  Sex: Female

DRUGS (5)
  1. AXEPIM [Suspect]
     Route: 042
     Dates: start: 20040716, end: 20040726
  2. VANCOMYCIN [Suspect]
     Indication: STAPHYLOCOCCAL SEPSIS
     Dosage: 22-JUN-2004 TO 07-JUL-2004 THEN 16-JUL-2004 TO 26-JUL-2004
     Route: 042
     Dates: start: 20040716, end: 20040726
  3. OMEPRAZOLE [Concomitant]
     Dates: start: 20040429, end: 20040801
  4. TRANXENE [Concomitant]
     Dates: start: 20040512
  5. ANAFRANIL [Concomitant]
     Dates: start: 20040514

REACTIONS (11)
  - ALANINE AMINOTRANSFERASE INCREASED [None]
  - ASPARTATE AMINOTRANSFERASE INCREASED [None]
  - BLOOD ALKALINE PHOSPHATASE INCREASED [None]
  - BLOOD CREATININE INCREASED [None]
  - EOSINOPHILIA [None]
  - HEPATIC ENZYME INCREASED [None]
  - HYPERSENSITIVITY [None]
  - LEUKOCYTOSIS [None]
  - PYREXIA [None]
  - RASH PAPULAR [None]
  - TOXIC SKIN ERUPTION [None]
